FAERS Safety Report 23810823 (Version 1)
Quarter: 2024Q2

REPORT INFORMATION
  Report Type: Spontaneous
  Country: AU (occurrence: None)
  Receive Date: 20240502
  Receipt Date: 20240502
  Transmission Date: 20240716
  Serious: Yes (Hospitalization, Disabling, Other)
  Sender: FDA-Public Use
  Company Number: 2024A103018

PATIENT
  Sex: Male
  Weight: 88 kg

DRUGS (5)
  1. QUETIAPINE FUMARATE [Suspect]
     Active Substance: QUETIAPINE FUMARATE
     Indication: Psychotic disorder
     Dosage: AT NIGHT/ DOSE INCREASED TO 235 MG50.0MG UNKNOWN
     Dates: start: 20240210, end: 20240410
  2. QUETIAPINE FUMARATE [Suspect]
     Active Substance: QUETIAPINE FUMARATE
     Indication: Sleep disorder
     Dosage: AT NIGHT/ DOSE INCREASED TO 235 MG50.0MG UNKNOWN
     Dates: start: 20240210, end: 20240410
  3. FISH OIL [Concomitant]
     Active Substance: FISH OIL
  4. MAGNESIUM [Concomitant]
     Active Substance: MAGNESIUM
  5. VITAMIN C [Concomitant]
     Active Substance: ASCORBIC ACID

REACTIONS (10)
  - Anxiety [Not Recovered/Not Resolved]
  - Emotional poverty [Not Recovered/Not Resolved]
  - Cognitive disorder [Not Recovered/Not Resolved]
  - Suicidal ideation [Not Recovered/Not Resolved]
  - Decreased appetite [Not Recovered/Not Resolved]
  - Condition aggravated [Not Recovered/Not Resolved]
  - Anhedonia [Unknown]
  - Akathisia [Unknown]
  - Intentional product misuse [Unknown]
  - Apathy [Unknown]

NARRATIVE: CASE EVENT DATE: 20240210
